FAERS Safety Report 20539933 (Version 1)
Quarter: 2022Q1

REPORT INFORMATION
  Report Type: Report from Study
  Country: CO (occurrence: CO)
  Receive Date: 20220302
  Receipt Date: 20220302
  Transmission Date: 20220424
  Serious: Yes (Death, Hospitalization)
  Sender: FDA-Public Use
  Company Number: CO-JNJFOC-20211118071

PATIENT
  Age: 46 Year
  Sex: Male
  Weight: 68 kg

DRUGS (1)
  1. DARZALEX [Suspect]
     Active Substance: DARATUMUMAB
     Indication: Plasma cell myeloma
     Dosage: LAST ADMINISTRATION DATE 02-NOV-2021
     Route: 042
     Dates: start: 20210722, end: 20211102

REACTIONS (3)
  - Plasma cell myeloma [Fatal]
  - Otitis media acute [Not Recovered/Not Resolved]
  - Pneumonia [Not Recovered/Not Resolved]

NARRATIVE: CASE EVENT DATE: 20211104
